FAERS Safety Report 7579142-8 (Version None)
Quarter: 2011Q2

REPORT INFORMATION
  Report Type: 
  Country: None (occurrence: None)
  Receive Date: 20110628
  Receipt Date: 20110615
  Transmission Date: 20111010
  Serious: Yes (Other)
  Sender: FDA-Public Use
  Company Number: US-PFIZER INC-2011131478

PATIENT
  Sex: Male
  Weight: 122 kg

DRUGS (6)
  1. PLAVIX [Concomitant]
     Dosage: UNK
  2. CRESTOR [Concomitant]
     Indication: BLOOD CHOLESTEROL INCREASED
     Dosage: UNK
     Dates: end: 20110601
  3. METOPROLOL [Concomitant]
     Dosage: UNK
  4. XANAX [Concomitant]
     Indication: SLEEP DISORDER
     Dosage: UNK
  5. MULTI-VITAMINS [Concomitant]
     Dosage: UNK
  6. PRISTIQ [Suspect]
     Indication: DEPRESSION
     Dosage: 50 MG, 1X/DAY
     Route: 048
     Dates: start: 20090101

REACTIONS (5)
  - ELECTROLYTE IMBALANCE [None]
  - ASTHENIA [None]
  - FATIGUE [None]
  - HEPATIC FUNCTION ABNORMAL [None]
  - UNEVALUABLE EVENT [None]
